FAERS Safety Report 5803132-6 (Version None)
Quarter: 2008Q3

REPORT INFORMATION
  Report Type: 
  Country: None (occurrence: None)
  Receive Date: 20080708
  Receipt Date: 20080627
  Transmission Date: 20090109
  Serious: Yes (Hospitalization, Disabling)
  Sender: FDA-Public Use
  Company Number: US-MERCK-0803USA03432

PATIENT
  Age: 62 Year
  Sex: Female

DRUGS (3)
  1. FOSAMAX [Suspect]
     Indication: OSTEOPOROSIS
     Route: 048
     Dates: start: 20020601, end: 20060901
  2. LIPITOR [Concomitant]
     Indication: BLOOD CHOLESTEROL INCREASED
     Route: 065
     Dates: start: 19990101
  3. SYNTHROID [Concomitant]
     Indication: HYPOTHYROIDISM
     Route: 065
     Dates: start: 20010101

REACTIONS (12)
  - ABSCESS [None]
  - BONE DISORDER [None]
  - DEVICE RELATED INFECTION [None]
  - DYSLIPIDAEMIA [None]
  - GASTROENTERITIS VIRAL [None]
  - HYPERTENSION [None]
  - INFECTION [None]
  - JAW DISORDER [None]
  - LARYNGITIS [None]
  - OESOPHAGITIS [None]
  - ORAL INFECTION [None]
  - RESORPTION BONE INCREASED [None]
